FAERS Safety Report 5453730-7 (Version None)
Quarter: 2007Q3

REPORT INFORMATION
  Report Type: 
  Country: None (occurrence: None)
  Receive Date: 20070917
  Receipt Date: 20070913
  Transmission Date: 20080115
  Serious: Yes (Hospitalization)
  Sender: FDA-Public Use
  Company Number: GB-BRISTOL-MYERS SQUIBB COMPANY-13828785

PATIENT
  Sex: Female
  Weight: 64 kg

DRUGS (1)
  1. HYDREA [Suspect]

REACTIONS (6)
  - ACCIDENTAL EXPOSURE [None]
  - ATRIOVENTRICULAR BLOCK [None]
  - DIZZINESS [None]
  - HEADACHE [None]
  - PAINFUL RESPIRATION [None]
  - SYNCOPE [None]
